FAERS Safety Report 15658615 (Version 1)
Quarter: 2018Q4

REPORT INFORMATION
  Report Type: Spontaneous
  Country: US (occurrence: US)
  Receive Date: 20181126
  Receipt Date: 20181126
  Transmission Date: 20190205
  Serious: No
  Sender: FDA-Public Use
  Company Number: US-SEPTODONT-201804566

PATIENT
  Sex: Female

DRUGS (1)
  1. MARCAINE 0.5% WTIH EPI 1:200 000 BOX OF 50 [Suspect]
     Active Substance: BUPIVACAINE HYDROCHLORIDE\EPINEPHRINE BITARTRATE
     Indication: DENTAL LOCAL ANAESTHESIA

REACTIONS (1)
  - Drug ineffective [Recovered/Resolved]
